FAERS Safety Report 13068776 (Version 1)
Quarter: 2016Q4

REPORT INFORMATION
  Report Type: Spontaneous
  Country: FR (occurrence: FR)
  Receive Date: 20161228
  Receipt Date: 20161228
  Transmission Date: 20170207
  Serious: Yes (Hospitalization, Other)
  Sender: FDA-Public Use
  Company Number: FR-ACTELION-A-CH2016-147219

PATIENT
  Age: 61 Year
  Sex: Female

DRUGS (9)
  1. ADCIRCA [Concomitant]
     Active Substance: TADALAFIL
     Dosage: 40 MG, QD
  2. VOLIBRIS [Concomitant]
     Active Substance: AMBRISENTAN
     Dosage: 5 MG, QD
     Dates: start: 201512
  3. COUMADINE [Concomitant]
     Active Substance: WARFARIN SODIUM
  4. LASILIX [Concomitant]
     Active Substance: FUROSEMIDE
     Dosage: 40 MG, QD
  5. LASILIX [Concomitant]
     Active Substance: FUROSEMIDE
     Dosage: 60 MG, QD
  6. VELETRI [Suspect]
     Active Substance: EPOPROSTENOL
     Indication: PULMONARY ARTERIAL HYPERTENSION
     Dosage: UNK
     Route: 042
     Dates: start: 2016
  7. VELETRI [Suspect]
     Active Substance: EPOPROSTENOL
     Dosage: 22 NG/KG, PER MIN
     Route: 042
  8. ALDACTONE [Concomitant]
     Active Substance: SPIRONOLACTONE
     Dosage: 50 MG, QD
  9. ALDACTONE [Concomitant]
     Active Substance: SPIRONOLACTONE
     Dosage: 25 MG, QD

REACTIONS (17)
  - Device related sepsis [Recovered/Resolved]
  - Hypotension [Recovered/Resolved]
  - Inadequate aseptic technique in use of product [Recovered/Resolved]
  - Hyperlactacidaemia [Recovering/Resolving]
  - Septic shock [Recovered/Resolved]
  - Enterobacter test positive [Recovered/Resolved]
  - Hepatocellular injury [Unknown]
  - Vomiting [Recovered/Resolved]
  - Catheter removal [Recovered/Resolved]
  - Pyrexia [Recovered/Resolved]
  - Chills [Recovered/Resolved]
  - Dyspnoea [Recovered/Resolved]
  - Catheter site infection [Recovered/Resolved]
  - Acute kidney injury [Recovering/Resolving]
  - Oedema peripheral [Unknown]
  - Enterobacter sepsis [Recovered/Resolved]
  - Anaemia [Unknown]

NARRATIVE: CASE EVENT DATE: 20161119
